FAERS Safety Report 8886473 (Version 9)
Quarter: 2014Q1

REPORT INFORMATION
  Report Type: Spontaneous
  Country: IE (occurrence: IE)
  Receive Date: 20121105
  Receipt Date: 20140310
  Transmission Date: 20141002
  Serious: Yes (Death, Other)
  Sender: FDA-Public Use
  Company Number: PHFR2012IE005732

PATIENT
  Age: 58 Year
  Sex: Female

DRUGS (1)
  1. CLOZARIL [Suspect]
     Indication: SCHIZOPHRENIA
     Dosage: UNK UKN, UNK
     Route: 048
     Dates: start: 20020911

REACTIONS (10)
  - Squamous cell carcinoma of lung [Fatal]
  - Neoplasm malignant [Fatal]
  - Lung disorder [Fatal]
  - Dyspnoea [Fatal]
  - Exercise tolerance decreased [Fatal]
  - Mediastinal disorder [Fatal]
  - Mass [Fatal]
  - Pleural effusion [Fatal]
  - Metastases to spine [Unknown]
  - Back pain [Unknown]
